FAERS Safety Report 7981709-X (Version None)
Quarter: 2011Q4

REPORT INFORMATION
  Report Type: 
  Country: None (occurrence: None)
  Receive Date: 20111215
  Receipt Date: 20111207
  Transmission Date: 20120403
  Serious: Yes (Death, Hospitalization, Other)
  Sender: FDA-Public Use
  Company Number: NO-JNJFOC-20110902111

PATIENT
  Sex: Female

DRUGS (12)
  1. MORPHINE [Suspect]
     Indication: SKIN ULCER
     Dosage: SEVERAL TIMES A DAY
     Route: 051
     Dates: start: 20110724
  2. FENTANYL [Suspect]
     Indication: DECUBITUS ULCER
     Dosage: ONCE EVERY 3 DAYS
     Route: 062
     Dates: start: 20110703
  3. FENTANYL [Suspect]
     Dosage: ONCE A WEEK
     Route: 062
     Dates: start: 20110514, end: 20110630
  4. BUPRENORPHINE [Suspect]
     Indication: DECUBITUS ULCER
     Dosage: ONCE  A WEEK
     Route: 062
     Dates: start: 20110324, end: 20110514
  5. BUPRENORPHINE [Suspect]
     Dosage: ONCE  A WEEK
     Route: 062
     Dates: start: 20110324, end: 20110514
  6. FENTANYL [Suspect]
     Dosage: ONCE A WEEK
     Route: 062
     Dates: start: 20110514, end: 20110630
  7. TRAMADOL HCL [Suspect]
     Dosage: WHEN NEEDED
     Route: 048
     Dates: start: 20110324, end: 20110724
  8. MORPHINE [Suspect]
     Indication: DECUBITUS ULCER
     Dosage: SEVERAL TIMES A DAY
     Route: 051
     Dates: start: 20110724
  9. PANTOPRAZOLE [Concomitant]
     Route: 065
  10. TRAMADOL HCL [Suspect]
     Indication: BACK PAIN
     Route: 048
     Dates: start: 20110216, end: 20110301
  11. MORPHINE [Suspect]
     Dosage: SEVERAL TIMES A DAY
     Route: 051
     Dates: start: 20110724
  12. FENTANYL [Suspect]
     Dosage: ONCE EVERY 3 DAYS
     Route: 062
     Dates: start: 20110703

REACTIONS (11)
  - RESPIRATORY ARREST [None]
  - SEDATION [None]
  - DYSPNOEA [None]
  - DYSKINESIA [None]
  - MUSCULAR WEAKNESS [None]
  - MUSCLE RIGIDITY [None]
  - DYSPHAGIA [None]
  - SPEECH DISORDER [None]
  - AGITATION [None]
  - TRISMUS [None]
  - SOMNOLENCE [None]
